FAERS Safety Report 8943816 (Version 1)
Quarter: 2012Q4

REPORT INFORMATION
  Report Type: 
  Country: GB (occurrence: GB)
  Receive Date: 20121204
  Receipt Date: 20121204
  Transmission Date: 20130627
  Serious: Yes (Other)
  Sender: FDA-Public Use
  Company Number: GB-TEVA-372196ISR

PATIENT
  Age: 74 Year
  Sex: Female

DRUGS (7)
  1. WARFARIN [Suspect]
     Indication: COAGULATION TIME ABNORMAL
  2. ALLOPURINOL [Suspect]
     Indication: GOUT
  3. SIMVASTATIN [Suspect]
     Indication: BLOOD CHOLESTEROL INCREASED
     Dates: end: 20121103
  4. FUROSEMIDE [Suspect]
     Indication: FLUID RETENTION
  5. LISINOPRIL [Suspect]
     Indication: BLOOD PRESSURE
  6. GLICLAZIDE [Suspect]
     Indication: ANXIETY
  7. ANTI-ASTHMATICS [Concomitant]

REACTIONS (3)
  - Face oedema [Not Recovered/Not Resolved]
  - Hot flush [Not Recovered/Not Resolved]
  - Malaise [Not Recovered/Not Resolved]
